FAERS Safety Report 4422241-X (Version None)
Quarter: 2004Q3

REPORT INFORMATION
  Report Type: 
  Country: None (occurrence: None)
  Receive Date: 20040810
  Receipt Date: 20030414
  Transmission Date: 20050211
  Serious: Yes (Hospitalization, Disabling)
  Sender: FDA-Public Use
  Company Number: US-MERCK-0304USA01437

PATIENT
  Age: 64 Year
  Sex: Female
  Weight: 49 kg

DRUGS (19)
  1. [THERAPY UNSPECIFIED] [Concomitant]
     Route: 065
  2. TYLENOL [Concomitant]
     Route: 065
  3. PROVENTIL [Concomitant]
     Route: 065
  4. BUSPAR [Concomitant]
     Route: 065
  5. CIPRO [Concomitant]
     Route: 065
  6. TRANXENE [Concomitant]
     Route: 065
  7. DIPHENHYDRAMINE CITRATE [Concomitant]
     Route: 065
  8. EPIPEN [Concomitant]
     Route: 065
  9. ALLEGRA [Concomitant]
     Route: 065
  10. DURATUSS [Concomitant]
     Route: 065
  11. HYDROXYZINE PAMOATE [Concomitant]
     Route: 065
  12. MOTRIN [Concomitant]
     Route: 065
  13. LOPERAMIDE HYDROCHLORIDE [Concomitant]
     Route: 065
  14. METHYLPREDNISOLONE [Concomitant]
     Route: 065
  15. NASONEX [Concomitant]
     Route: 065
  16. ELOCON [Concomitant]
     Route: 065
  17. ACTONEL [Concomitant]
     Route: 065
  18. VIOXX [Suspect]
     Indication: ARTHRITIS
     Route: 048
     Dates: start: 19991012, end: 20010326
  19. ULTRAM [Concomitant]
     Route: 065

REACTIONS (39)
  - ACTIVATED PARTIAL THROMBOPLASTIN TIME SHORTENED [None]
  - ACUTE MYOCARDIAL INFARCTION [None]
  - ANAEMIA [None]
  - ANGINA PECTORIS [None]
  - ANXIETY [None]
  - BLOOD CHOLESTEROL INCREASED [None]
  - BRADYCARDIA [None]
  - CALCULUS URINARY [None]
  - CARDIAC FAILURE CONGESTIVE [None]
  - CAROTID ARTERY DISEASE [None]
  - CAROTID ARTERY STENOSIS [None]
  - CHRONIC OBSTRUCTIVE AIRWAYS DISEASE [None]
  - CORONARY ARTERY OCCLUSION [None]
  - CORONARY ARTERY THROMBOSIS [None]
  - DIVERTICULUM INTESTINAL [None]
  - EMOTIONAL DISTRESS [None]
  - FLUID OVERLOAD [None]
  - GASTRITIS [None]
  - GASTRITIS HAEMORRHAGIC [None]
  - GASTROINTESTINAL HAEMORRHAGE [None]
  - HAEMATURIA [None]
  - HAEMORRHOIDS [None]
  - HYPERTENSION [None]
  - HYPOTENSION [None]
  - MYOCARDIAL INFARCTION [None]
  - OSTEOPOROSIS [None]
  - PAIN [None]
  - PAIN IN EXTREMITY [None]
  - PALPITATIONS [None]
  - PLATELET COUNT INCREASED [None]
  - PROCTITIS [None]
  - STRESS SYMPTOMS [None]
  - THROMBOSIS [None]
  - TOBACCO ABUSE [None]
  - UPPER GASTROINTESTINAL HAEMORRHAGE [None]
  - UPPER RESPIRATORY TRACT INFECTION [None]
  - URINARY SYSTEM X-RAY ABNORMAL [None]
  - URINARY TRACT INFECTION [None]
  - WEIGHT DECREASED [None]
